FAERS Safety Report 14097160 (Version 1)
Quarter: 2017Q4

REPORT INFORMATION
  Report Type: Spontaneous
  Country: US (occurrence: US)
  Receive Date: 20171017
  Receipt Date: 20171017
  Transmission Date: 20180321
  Serious: No
  Sender: FDA-Public Use
  Company Number: US-WEST-WARD PHARMACEUTICALS CORP.-US-H14001-17-01725

PATIENT
  Sex: Male

DRUGS (5)
  1. INFUMORPH [Suspect]
     Active Substance: MORPHINE SULFATE
     Indication: SPINAL PAIN
     Dosage: 0.15011 MG
     Route: 037
  2. INFUMORPH [Suspect]
     Active Substance: MORPHINE SULFATE
     Dosage: 200.19 MCG
     Route: 037
  3. CLONIDINE. [Suspect]
     Active Substance: CLONIDINE
     Indication: SPINAL PAIN
     Dosage: 40.037 MCG
     Route: 037
  4. BUPIVACAINE. [Suspect]
     Active Substance: BUPIVACAINE
     Indication: SPINAL PAIN
     Dosage: 3.002 MG
     Route: 037
  5. BUPIVACAINE. [Suspect]
     Active Substance: BUPIVACAINE
     Dosage: 4.0037 MG
     Route: 037

REACTIONS (1)
  - Arthralgia [Unknown]
